FAERS Safety Report 7091736-5 (Version None)
Quarter: 2010Q4

REPORT INFORMATION
  Report Type: 
  Country: None (occurrence: None)
  Receive Date: 20101109
  Receipt Date: 20101022
  Transmission Date: 20110411
  Serious: Yes (Hospitalization, Disabling)
  Sender: FDA-Public Use
  Company Number: PHHY2010TR70991

PATIENT
  Sex: Female

DRUGS (2)
  1. CGP 57148B T35717+ [Suspect]
     Indication: CHRONIC MYELOID LEUKAEMIA
     Dosage: 400 MG, UNK
     Route: 048
     Dates: start: 20090811
  2. CGP 57148B T35717+ [Suspect]
     Dosage: 400 MG, UNK
     Route: 048
     Dates: end: 20100607

REACTIONS (5)
  - ALOPECIA [None]
  - ERYTHEMA [None]
  - PRURITUS [None]
  - RASH MACULAR [None]
  - VASCULITIS [None]
